FAERS Safety Report 14701756 (Version 5)
Quarter: 2019Q1

REPORT INFORMATION
  Report Type: Spontaneous
  Country: PT (occurrence: PT)
  Receive Date: 20180331
  Receipt Date: 20190320
  Transmission Date: 20190417
  Serious: Yes (Other)
  Sender: FDA-Public Use
  Company Number: PT-AUROBINDO-AUR-APL-2018-016890

PATIENT

DRUGS (8)
  1. METFORMIN [Suspect]
     Active Substance: METFORMIN HYDROCHLORIDE
     Dosage: UNK
     Route: 065
  2. LINAGLIPTIN [Suspect]
     Active Substance: LINAGLIPTIN
     Indication: DIABETES MELLITUS
     Dosage: 5 MG, QD
     Route: 065
  3. GLICLAZIDE [Suspect]
     Active Substance: GLICLAZIDE
     Indication: DIABETES MELLITUS
     Dosage: 60 MILLIGRAM, ONCE A DAY
     Route: 065
  4. TRAJENTA [Suspect]
     Active Substance: LINAGLIPTIN
     Indication: DIABETES MELLITUS
  5. METFORMIN [Suspect]
     Active Substance: METFORMIN HYDROCHLORIDE
     Indication: MITOCHONDRIAL DNA MUTATION
     Dosage: 1700 MILLIGRAM
     Route: 065
  6. METFORMIN [Suspect]
     Active Substance: METFORMIN HYDROCHLORIDE
     Dosage: 850 MG, BID
     Route: 065
  7. GLICLAZIDE [Suspect]
     Active Substance: GLICLAZIDE
     Indication: MITOCHONDRIAL DNA MUTATION
  8. TRAJENTA [Suspect]
     Active Substance: LINAGLIPTIN
     Indication: MITOCHONDRIAL DNA MUTATION
     Dosage: 5 MG, QD
     Route: 065

REACTIONS (5)
  - Myalgia [Unknown]
  - Asthenia [Unknown]
  - Off label use [Unknown]
  - Drug ineffective [Recovered/Resolved]
  - Hyperlactacidaemia [Recovered/Resolved]
